FAERS Safety Report 13896089 (Version 1)
Quarter: 2017Q3

REPORT INFORMATION
  Report Type: Spontaneous
  Country: US (occurrence: None)
  Receive Date: 20170816
  Receipt Date: 20170816
  Transmission Date: 20171127
  Serious: No
  Sender: FDA-Public Use
  Company Number: None

PATIENT
  Age: 31 Year
  Sex: Female
  Weight: 66.77 kg

DRUGS (2)
  1. RIFAMPIN. [Suspect]
     Active Substance: RIFAMPIN
     Route: 048
     Dates: start: 20170421
  2. ACAMPROSATE [Suspect]
     Active Substance: ACAMPROSATE
     Route: 048
     Dates: start: 20170421, end: 20170428

REACTIONS (4)
  - Drug ineffective [None]
  - Rash [None]
  - Urticaria [None]
  - Rash pruritic [None]

NARRATIVE: CASE EVENT DATE: 20170427
